FAERS Safety Report 22285316 (Version 1)
Quarter: 2023Q2

REPORT INFORMATION
  Report Type: Spontaneous
  Country: US (occurrence: None)
  Receive Date: 20230503
  Receipt Date: 20230503
  Transmission Date: 20230722
  Serious: Yes (Other)
  Sender: FDA-Public Use
  Company Number: None

PATIENT
  Age: 70 Year
  Sex: Male
  Weight: 107.95 kg

DRUGS (18)
  1. MOUNJARO [Suspect]
     Active Substance: TIRZEPATIDE
     Indication: Obesity
     Route: 058
     Dates: start: 20230223
  2. ADVAIR DISKUS [Concomitant]
     Active Substance: FLUTICASONE PROPIONATE\SALMETEROL XINAFOATE
  3. Spriva Handihaler [Concomitant]
  4. OMEPRAZOLE [Concomitant]
     Active Substance: OMEPRAZOLE
  5. Humalog Kuikpen [Concomitant]
  6. LANTUS SOLOSTAR [Concomitant]
     Active Substance: INSULIN GLARGINE
  7. METFORMIN [Concomitant]
     Active Substance: METFORMIN HYDROCHLORIDE
  8. XARELTO [Concomitant]
     Active Substance: RIVAROXABAN
  9. FLECAINIDE [Concomitant]
     Active Substance: FLECAINIDE
  10. METOPROLOL [Concomitant]
     Active Substance: METOPROLOL
  11. HYDROCHLOROTHIAZIDE\LOSARTAN [Concomitant]
     Active Substance: HYDROCHLOROTHIAZIDE\LOSARTAN
  12. AMLODIPINE [Concomitant]
     Active Substance: AMLODIPINE BESYLATE
  13. LATANOPROST [Concomitant]
     Active Substance: LATANOPROST
  14. SIMVASTATIN [Concomitant]
     Active Substance: SIMVASTATIN
  15. MULTI-VITAMIN [Concomitant]
     Active Substance: .ALPHA.-TOCOPHEROL ACETATE, DL-\ASCORBIC ACID\CYANOCOBALAMIN\FLUORIDE ION\FOLIC ACID\NIACIN\PYRIDOXI
  16. LORATADINE [Concomitant]
     Active Substance: LORATADINE
  17. TYLENOL [Concomitant]
     Active Substance: ACETAMINOPHEN
  18. Voltaran Gel [Concomitant]

REACTIONS (16)
  - Abdominal discomfort [None]
  - Abdominal distension [None]
  - Nausea [None]
  - Retching [None]
  - Abdominal distension [None]
  - Drug ineffective [None]
  - Hypophagia [None]
  - Weight decreased [None]
  - Diarrhoea [None]
  - Asthenia [None]
  - Muscle spasms [None]
  - Muscle spasms [None]
  - Malnutrition [None]
  - Intentional dose omission [None]
  - Bowel movement irregularity [None]
  - Intestinal obstruction [None]

NARRATIVE: CASE EVENT DATE: 20230223
